FAERS Safety Report 23656171 (Version 2)
Quarter: 2024Q2

REPORT INFORMATION
  Report Type: Spontaneous
  Country: US (occurrence: US)
  Receive Date: 20240321
  Receipt Date: 20240528
  Transmission Date: 20240715
  Serious: No
  Sender: FDA-Public Use
  Company Number: US-BRISTOL-MYERS SQUIBB COMPANY-2024-045242

PATIENT
  Age: 63 Year
  Sex: Male

DRUGS (1)
  1. POMALYST [Suspect]
     Active Substance: POMALIDOMIDE
     Indication: Plasma cell myeloma
     Route: 048
     Dates: start: 202402

REACTIONS (12)
  - White blood cell count decreased [Unknown]
  - Illness [Recovered/Resolved]
  - Gait inability [Recovered/Resolved]
  - Myalgia [Recovered/Resolved]
  - Nausea [Recovered/Resolved]
  - Tremor [Recovered/Resolved]
  - Rash [Recovered/Resolved]
  - Heart rate increased [Recovered/Resolved]
  - Constipation [Recovered/Resolved]
  - Dry skin [Recovered/Resolved]
  - Chapped lips [Recovered/Resolved]
  - Haemorrhage [Recovered/Resolved]
